FAERS Safety Report 13985557 (Version 1)
Quarter: 2017Q3

REPORT INFORMATION
  Report Type: Spontaneous
  Country: GB (occurrence: GB)
  Receive Date: 20170919
  Receipt Date: 20170919
  Transmission Date: 20171128
  Serious: Yes (Life-Threatening, Hospitalization)
  Sender: FDA-Public Use
  Company Number: GB-CIPLA LTD.-2017GB16349

PATIENT

DRUGS (4)
  1. OLANZAPINE. [Suspect]
     Active Substance: OLANZAPINE
     Dosage: 10 MG, QD, STARTED SEVERAL MONTHS AGO
     Route: 048
     Dates: start: 20170301
  2. MACROGOL 3350 [Concomitant]
     Active Substance: POLYETHYLENE GLYCOL 3350
     Dosage: UNK
     Route: 065
  3. AMITRIPTYLINE [Suspect]
     Active Substance: AMITRIPTYLINE
     Dosage: 200 MG, QD
     Route: 048
  4. PROCYCLIDINE [Concomitant]
     Active Substance: PROCYCLIDINE
     Dosage: 5 MG, BID
     Route: 065

REACTIONS (3)
  - Hyponatraemia [Recovering/Resolving]
  - Seizure [Unknown]
  - Confusional state [Unknown]

NARRATIVE: CASE EVENT DATE: 20170820
